FAERS Safety Report 5028148-1 (Version None)
Quarter: 2006Q2

REPORT INFORMATION
  Report Type: 
  Country: None (occurrence: None)
  Receive Date: 20060613
  Receipt Date: 20060605
  Transmission Date: 20061013
  Serious: Yes (Other)
  Sender: FDA-Public Use
  Company Number: 2006072122

PATIENT
  Age: 47 Year
  Sex: Female
  Weight: 67.586 kg

DRUGS (2)
  1. DILANTIN [Suspect]
     Indication: CONVULSION
     Dosage: 600 MG
     Dates: end: 20060605
  2. DETROL [Suspect]
     Indication: HYPERTONIC BLADDER
     Dosage: 2 MG (2 MG, 1 IN 1 D), ORAL
     Route: 048
     Dates: start: 20060511, end: 20060605

REACTIONS (6)
  - ANTICONVULSANT DRUG LEVEL ABOVE THERAPEUTIC [None]
  - BRUXISM [None]
  - DRUG TOXICITY [None]
  - HYPERTONIC BLADDER [None]
  - MUSCLE TIGHTNESS [None]
  - TOOTH FRACTURE [None]
